FAERS Safety Report 9313597 (Version 1)
Quarter: 2013Q2

REPORT INFORMATION
  Report Type: Spontaneous
  Country: US (occurrence: US)
  Receive Date: 20130528
  Receipt Date: 20130528
  Transmission Date: 20140414
  Serious: No
  Sender: FDA-Public Use
  Company Number: US-TEVA-407741USA

PATIENT
  Age: 56 Year
  Sex: Female
  Weight: 56.3 kg

DRUGS (3)
  1. PROAIR HFA [Suspect]
     Indication: BRONCHITIS BACTERIAL
     Dates: start: 20130523
  2. PROAIR HFA [Suspect]
     Indication: WHEEZING
  3. IMITREX [Concomitant]
     Indication: HEADACHE

REACTIONS (1)
  - Drug ineffective [Unknown]
